FAERS Safety Report 20659012 (Version 1)
Quarter: 2022Q1

REPORT INFORMATION
  Report Type: Spontaneous
  Country: US (occurrence: US)
  Receive Date: 20220331
  Receipt Date: 20220331
  Transmission Date: 20220423
  Serious: Yes (Other)
  Sender: FDA-Public Use
  Company Number: US-MLMSERVICE-20220314-3428373-2

PATIENT
  Age: 58 Year
  Sex: Male

DRUGS (15)
  1. DOXORUBICIN HYDROCHLORIDE [Suspect]
     Active Substance: DOXORUBICIN HYDROCHLORIDE
     Indication: Plasma cell myeloma
     Dosage: UNK UNK, CYCLIC
  2. DOXORUBICIN HYDROCHLORIDE [Suspect]
     Active Substance: DOXORUBICIN HYDROCHLORIDE
     Indication: Plasma cell leukaemia
  3. ETOPOSIDE [Suspect]
     Active Substance: ETOPOSIDE
     Indication: Plasma cell leukaemia
     Dosage: UNK UNK, CYCLIC
  4. ETOPOSIDE [Suspect]
     Active Substance: ETOPOSIDE
     Indication: Plasma cell myeloma
  5. MELPHALAN [Suspect]
     Active Substance: MELPHALAN
     Indication: Bone marrow conditioning regimen
     Dosage: HIGH DOSE
  6. BORTEZOMIB [Suspect]
     Active Substance: BORTEZOMIB
     Indication: Plasma cell myeloma
     Dosage: 4 CYCLE, CYCLIC
  7. BORTEZOMIB [Suspect]
     Active Substance: BORTEZOMIB
     Indication: Plasma cell leukaemia
     Dosage: UNK UNK, CYCLIC
  8. DEXAMETHASONE [Suspect]
     Active Substance: DEXAMETHASONE
     Indication: Plasma cell myeloma
     Dosage: 4 CYCLE, CYCLIC
  9. DEXAMETHASONE [Suspect]
     Active Substance: DEXAMETHASONE
     Indication: Plasma cell leukaemia
     Dosage: UNK UNK, CYCLIC
  10. CYCLOPHOSPHAMIDE [Suspect]
     Active Substance: CYCLOPHOSPHAMIDE
     Indication: Plasma cell leukaemia
     Dosage: 4 CYCLE, CYCLIC
  11. CYCLOPHOSPHAMIDE [Suspect]
     Active Substance: CYCLOPHOSPHAMIDE
     Indication: Plasma cell myeloma
     Dosage: UNK, CYCLIC
  12. THALIDOMIDE [Suspect]
     Active Substance: THALIDOMIDE
     Indication: Plasma cell leukaemia
     Dosage: UNK UNK, CYCLIC
  13. THALIDOMIDE [Suspect]
     Active Substance: THALIDOMIDE
     Indication: Plasma cell myeloma
  14. CISPLATIN [Suspect]
     Active Substance: CISPLATIN
     Indication: Plasma cell leukaemia
     Dosage: UNK UNK, CYCLIC
  15. CISPLATIN [Suspect]
     Active Substance: CISPLATIN
     Indication: Plasma cell myeloma

REACTIONS (4)
  - Appendicitis [Recovered/Resolved]
  - Gastrointestinal wall thickening [Recovered/Resolved]
  - Febrile neutropenia [Recovered/Resolved]
  - Mucosal inflammation [Recovered/Resolved]
